FAERS Safety Report 21801620 (Version 1)
Quarter: 2022Q4

REPORT INFORMATION
  Report Type: Spontaneous
  Country: DE (occurrence: DE)
  Receive Date: 20221230
  Receipt Date: 20221230
  Transmission Date: 20230112
  Serious: Yes (Other)
  Sender: FDA-Public Use
  Company Number: DE-BAXTER-2022BAX031344

PATIENT

DRUGS (27)
  1. DEXAMETHASONE [Suspect]
     Active Substance: DEXAMETHASONE
     Indication: Plasma cell myeloma
     Dosage: FIRST LINE TREATMENT
     Route: 065
     Dates: start: 20180216, end: 20180709
  2. DEXAMETHASONE [Suspect]
     Active Substance: DEXAMETHASONE
     Dosage: THIRD LINE TREATMENT
     Dates: start: 20220323, end: 20220504
  3. DEXAMETHASONE [Suspect]
     Active Substance: DEXAMETHASONE
     Dosage: SECOND LINE TREATMENT
     Dates: start: 20200911
  4. DEXAMETHASONE [Suspect]
     Active Substance: DEXAMETHASONE
     Dosage: FIFTH LINE TREATMENT
     Dates: start: 20220618, end: 20220621
  5. DEXAMETHASONE [Suspect]
     Active Substance: DEXAMETHASONE
     Dosage: FOURTH LINE TREATMENT
     Dates: start: 20220420, end: 20220517
  6. DOXORUBICIN [Suspect]
     Active Substance: DOXORUBICIN
     Indication: Plasma cell myeloma
     Dosage: FIFTH LINE TREATMENT
     Route: 065
     Dates: start: 20220618, end: 20220621
  7. ETOPOSIDE [Suspect]
     Active Substance: ETOPOSIDE
     Indication: Plasma cell myeloma
     Dosage: FIFTH LINE TREATMENT
     Route: 065
     Dates: start: 20220618, end: 20220621
  8. LENALIDOMIDE [Suspect]
     Active Substance: LENALIDOMIDE
     Indication: Plasma cell myeloma
     Dosage: FIRST LINE TREATMENT
     Route: 065
     Dates: start: 20180216, end: 20180709
  9. CARFILZOMIB [Suspect]
     Active Substance: CARFILZOMIB
     Indication: Plasma cell myeloma
     Dosage: FOURTH LINE TREATMENT
     Route: 065
     Dates: start: 20220420, end: 20220517
  10. CARFILZOMIB [Suspect]
     Active Substance: CARFILZOMIB
     Dosage: THIRD LINE TREATMENT
     Dates: start: 20220323, end: 20220504
  11. CYTARABINE [Suspect]
     Active Substance: CYTARABINE
     Indication: Meningeal disorder
     Dosage: SECOND LINE TREATMENT
     Route: 065
     Dates: start: 20200911
  12. CYTARABINE [Suspect]
     Active Substance: CYTARABINE
     Indication: Plasma cell myeloma
  13. CYCLOPHOSPHAMIDE [Suspect]
     Active Substance: CYCLOPHOSPHAMIDE
     Indication: Plasma cell myeloma
     Dosage: FIRST LINE TREATMENT
     Route: 065
     Dates: start: 20180216, end: 20180709
  14. CYCLOPHOSPHAMIDE [Suspect]
     Active Substance: CYCLOPHOSPHAMIDE
     Dosage: FIFTH LINE TREATMENT
     Dates: start: 20220618, end: 20220621
  15. METHOTREXATE [Suspect]
     Active Substance: METHOTREXATE
     Indication: Meningeal disorder
     Dosage: SECOND LINE TREATMENT
     Route: 065
     Dates: start: 20200911
  16. METHOTREXATE [Suspect]
     Active Substance: METHOTREXATE
     Indication: Plasma cell myeloma
  17. GENETICALLY-MODIFIED AUTOLOGOUS T CELLS NOS [Suspect]
     Active Substance: GENETICALLY-MODIFIED AUTOLOGOUS T CELLS NOS
     Indication: Plasma cell myeloma
     Dosage: BCMA-TARGETED, SIXTH LINE TREATMENT
     Route: 065
     Dates: start: 20220713, end: 20220718
  18. BORTEZOMIB [Suspect]
     Active Substance: BORTEZOMIB
     Indication: Plasma cell myeloma
     Dosage: FIRST LINE TREATMENT
     Route: 065
     Dates: start: 20180216, end: 20180709
  19. DARATUMUMAB [Suspect]
     Active Substance: DARATUMUMAB
     Indication: Plasma cell myeloma
     Dosage: FIFTH LINE TREATMENT
     Route: 065
     Dates: start: 20220618, end: 20220621
  20. DARATUMUMAB [Suspect]
     Active Substance: DARATUMUMAB
     Indication: Meningeal disorder
     Dosage: SECOND LINE TREATMENT
     Dates: start: 20200911
  21. DARATUMUMAB [Suspect]
     Active Substance: DARATUMUMAB
     Dosage: FOURTH LINE TREATMENT
     Dates: start: 20220420, end: 20220517
  22. ISATUXIMAB [Suspect]
     Active Substance: ISATUXIMAB
     Indication: Plasma cell myeloma
     Dosage: THIRD LINE TREATMENT
     Route: 065
     Dates: start: 20220323, end: 20220504
  23. CISPLATIN [Suspect]
     Active Substance: CISPLATIN
     Indication: Plasma cell myeloma
     Dosage: FIFTH LINE TREATMENT
     Route: 065
     Dates: start: 20220618, end: 20220621
  24. MELPHALAN [Suspect]
     Active Substance: MELPHALAN
     Indication: Plasma cell myeloma
     Dosage: SECOND LINE TREATMENT
     Route: 065
     Dates: start: 20200911
  25. MELPHALAN [Suspect]
     Active Substance: MELPHALAN
     Dosage: FIRST LINE TREATMENT
     Dates: start: 20180216, end: 20180709
  26. THIOTEPA [Suspect]
     Active Substance: THIOTEPA
     Indication: Meningeal disorder
     Dosage: SECOND LINE TREATMENT
     Route: 065
     Dates: start: 20200911
  27. THIOTEPA [Suspect]
     Active Substance: THIOTEPA
     Indication: Plasma cell myeloma

REACTIONS (2)
  - Disease progression [Unknown]
  - Plasma cell myeloma refractory [Unknown]
